FAERS Safety Report 4933053-2 (Version None)
Quarter: 2006Q1

REPORT INFORMATION
  Report Type: 
  Country: None (occurrence: None)
  Receive Date: 20060301
  Receipt Date: 20060221
  Transmission Date: 20060701
  Serious: Yes (Death)
  Sender: FDA-Public Use
  Company Number: 2006S1000630

PATIENT
  Age: 55 Year
  Sex: Male
  Weight: 98.8842 kg

DRUGS (13)
  1. FENTANYL TRANSDERMAL SYSTEM [Suspect]
     Indication: BACK PAIN
     Dosage: 300 UG/HR;Q3D;TRANS
     Route: 062
     Dates: start: 20051001
  2. FENTANYL TRANSDERMAL SYSTEM [Suspect]
     Indication: LUNG CANCER METASTATIC
     Dosage: 300 UG/HR;Q3D;TRANS
     Route: 062
     Dates: start: 20051001
  3. FENTANYL TRANSDERMAL SYSTEM [Suspect]
     Indication: MUSCULOSKELETAL CHEST PAIN
     Dosage: 300 UG/HR;Q3D;TRANS
     Route: 062
     Dates: start: 20051001
  4. FENTANYL TRANSDERMAL SYSTEM [Suspect]
  5. DEXAMETHASONE TAB [Concomitant]
  6. NEXAVAR [Concomitant]
  7. MORPHINE SULFATE [Concomitant]
  8. LORAZEPAM [Concomitant]
  9. HYDROXYZINE [Concomitant]
  10. OMEPRAZOLE [Concomitant]
  11. MEGESTROL ACETATE [Concomitant]
  12. INSULIN ASPART [Concomitant]
  13. LACTULOSE [Concomitant]

REACTIONS (4)
  - MALIGNANT NEOPLASM PROGRESSION [None]
  - PAIN [None]
  - PHARMACEUTICAL PRODUCT COMPLAINT [None]
  - RENAL CELL CARCINOMA STAGE UNSPECIFIED [None]
